FAERS Safety Report 8967666 (Version 1)
Quarter: 2012Q4

REPORT INFORMATION
  Report Type: Spontaneous
  Country: US (occurrence: None)
  Receive Date: 20121206
  Receipt Date: 20121206
  Transmission Date: 20130627
  Serious: Yes (Other)
  Sender: FDA-Public Use
  Company Number: 110222-013693

PATIENT
  Age: 62 Year
  Sex: Female

DRUGS (2)
  1. SHEER COVER PRESSED MINERAL FOUNDATION SPF 12 [Suspect]
     Route: 061
     Dates: start: 20111101
  2. SHEER COVER SHADE ADAPTING MINERAL FOUNDATION SPF 15 [Suspect]
     Dosage: once daily dermal
     Dates: start: 20111101

REACTIONS (3)
  - Rash [None]
  - Urticaria [None]
  - Asthma [None]
